FAERS Safety Report 7564979-1 (Version None)
Quarter: 2011Q2

REPORT INFORMATION
  Report Type: 
  Country: None (occurrence: None)
  Receive Date: 20110622
  Receipt Date: 20110408
  Transmission Date: 20111010
  Serious: Yes (Life-Threatening, Other)
  Sender: FDA-Public Use
  Company Number: US-MYLANLABS-2011S1005260

PATIENT
  Age: 45 Year
  Sex: Male
  Weight: 104.33 kg

DRUGS (12)
  1. LEXAPRO [Concomitant]
  2. PREDNISONE [Concomitant]
  3. CLOZAPINE [Suspect]
     Indication: SCHIZOPHRENIA
     Route: 048
     Dates: start: 20031101, end: 20110303
  4. POTASSIUM CHLORIDE [Concomitant]
  5. NEXIUM [Concomitant]
  6. CLOZAPINE [Suspect]
     Indication: SCHIZOAFFECTIVE DISORDER
     Route: 048
     Dates: start: 20031101, end: 20110303
  7. CHEMOTHERAPEUTICS [Suspect]
     Indication: NEOPLASM MALIGNANT
  8. CHEMOTHERAPEUTICS [Suspect]
     Indication: LYMPHOMA
  9. FENOFIBRATE [Concomitant]
  10. LOVASTATIN [Concomitant]
  11. CARVEDILOL [Concomitant]
  12. LEVOTHYROXINE SODIUM [Concomitant]

REACTIONS (3)
  - GRANULOCYTOPENIA [None]
  - LEUKOPENIA [None]
  - AGRANULOCYTOSIS [None]
